FAERS Safety Report 6158895-X (Version None)
Quarter: 2009Q2

REPORT INFORMATION
  Report Type: 
  Country: None (occurrence: None)
  Receive Date: 20090417
  Receipt Date: 20090407
  Transmission Date: 20091009
  Serious: Yes (Death, Hospitalization)
  Sender: FDA-Public Use
  Company Number: ZA-ABBOTT-09P-143-0562139-00

PATIENT
  Sex: Male

DRUGS (7)
  1. RITONAVIR ORAL SOLUTION [Suspect]
     Indication: HIV INFECTION
     Route: 048
     Dates: start: 20090226, end: 20090305
  2. FOSAMPRENAVIR [Concomitant]
     Indication: HIV INFECTION
     Route: 048
     Dates: start: 20090226, end: 20090305
  3. HERBAL MEDICATION [Concomitant]
     Indication: DRUG USE FOR UNKNOWN INDICATION
     Route: 065
  4. ABACAVIR SULFATE [Concomitant]
     Indication: DRUG USE FOR UNKNOWN INDICATION
     Dates: start: 20090226, end: 20090305
  5. LAMIVUDINE [Concomitant]
     Indication: DRUG USE FOR UNKNOWN INDICATION
     Dates: start: 20090226, end: 20090305
  6. CO-TRIMOXAZOLE [Concomitant]
     Indication: DRUG USE FOR UNKNOWN INDICATION
     Dates: start: 20090210, end: 20090305
  7. FERROUS GLUCONATE [Concomitant]
     Indication: DRUG USE FOR UNKNOWN INDICATION
     Dates: start: 20090217, end: 20090305

REACTIONS (2)
  - DRUG TOXICITY [None]
  - GASTROENTERITIS [None]
